FAERS Safety Report 7043897-1 (Version None)
Quarter: 2010Q4

REPORT INFORMATION
  Report Type: 
  Country: None (occurrence: None)
  Receive Date: 20101012
  Receipt Date: 20101012
  Transmission Date: 20110411
  Serious: No
  Sender: FDA-Public Use
  Company Number: None

PATIENT
  Age: 21 Year
  Sex: Female
  Weight: 53.0709 kg

DRUGS (2)
  1. CIPROFLOXACIN [Suspect]
     Indication: URINARY TRACT INFECTION
     Dosage: 250 MG 1 DOSE PO
     Route: 048
     Dates: start: 20100830, end: 20100830
  2. MIRTAZAPINE [Concomitant]

REACTIONS (14)
  - ANXIETY [None]
  - ARTHRALGIA [None]
  - DYSAESTHESIA [None]
  - EMOTIONAL DISTRESS [None]
  - FEAR [None]
  - FEELING COLD [None]
  - HYPOAESTHESIA [None]
  - MUSCLE CONTRACTIONS INVOLUNTARY [None]
  - MUSCULOSKELETAL PAIN [None]
  - MYALGIA [None]
  - NEUROPATHY PERIPHERAL [None]
  - PANIC REACTION [None]
  - PARAESTHESIA [None]
  - SKIN BURNING SENSATION [None]
